FAERS Safety Report 8325598-2 (Version None)
Quarter: 2012Q2

REPORT INFORMATION
  Report Type: 
  Country: None (occurrence: None)
  Receive Date: 20120501
  Receipt Date: 20100512
  Transmission Date: 20120825
  Serious: No
  Sender: FDA-Public Use
  Company Number: US-TEVA-2010002710

PATIENT
  Age: 33 Year
  Sex: Female
  Weight: 81.72 kg

DRUGS (3)
  1. PRECOSE [Concomitant]
  2. BYETTA [Concomitant]
  3. NUVIGIL [Suspect]
     Indication: NARCOLEPSY
     Dosage: 150 MILLIGRAM;
     Route: 048
     Dates: start: 20100506

REACTIONS (2)
  - AGITATION [None]
  - HUNGER [None]
